FAERS Safety Report 4486421-X (Version None)
Quarter: 2004Q4

REPORT INFORMATION
  Report Type: 
  Country: None (occurrence: None)
  Receive Date: 20041027
  Receipt Date: 20040508
  Transmission Date: 20050328
  Serious: Yes (Other)
  Sender: FDA-Public Use
  Company Number: FR-BRISTOL-MYERS SQUIBB COMPANY-12583894

PATIENT
  Age: 75 Year
  Sex: Male

DRUGS (2)
  1. QUESTRAN [Suspect]
     Indication: COLON OPERATION
     Dosage: 4 GM X 3 SACHETS
     Route: 048
     Dates: start: 20030625, end: 20041009
  2. IMODIUM [Concomitant]

REACTIONS (3)
  - ABDOMINAL PAIN [None]
  - FALL [None]
  - VOMITING [None]
